FAERS Safety Report 10617391 (Version 4)
Quarter: 2014Q4

REPORT INFORMATION
  Report Type: Report from Study
  Country: AU (occurrence: AU)
  Receive Date: 20141201
  Receipt Date: 20141229
  Transmission Date: 20150529
  Serious: Yes (Other)
  Sender: FDA-Public Use
  Company Number: AU-MERCK-1409AUS007403

PATIENT
  Age: 74 Year
  Sex: Male
  Weight: 94.9 kg

DRUGS (6)
  1. PEMBROLIZUMAB. [Suspect]
     Active Substance: PEMBROLIZUMAB
     Indication: MALIGNANT MELANOMA
     Dosage: 10 MG/KG, Q3W, INITIAL DOSE 990 MG
     Route: 042
     Dates: start: 20130125
  2. CHLOROMYCETIN [Concomitant]
     Active Substance: CHLORAMPHENICOL
     Indication: ADVERSE EVENT
     Dosage: PRN
     Route: 047
     Dates: start: 20140412, end: 20140419
  3. LIPITOR [Concomitant]
     Active Substance: ATORVASTATIN CALCIUM
     Indication: HYPERCHOLESTEROLAEMIA
     Dosage: 20 MG, DAILY
     Route: 048
     Dates: start: 20130420
  4. PEMBROLIZUMAB. [Suspect]
     Active Substance: PEMBROLIZUMAB
     Dosage: 10 MG/KG, Q3W, DOSE AT ONSET OF EVENT 990 MG, DOSE IN SERIES: CYCLE 22
     Route: 042
     Dates: start: 20140414
  5. PEMBROLIZUMAB. [Suspect]
     Active Substance: PEMBROLIZUMAB
     Dosage: 10MG/KG, Q3W, DOSE AT ONSET OF EVENT 990MG, DOSE IN SERIES CYCLE 28
     Route: 042
     Dates: start: 20140818, end: 20140818
  6. ATORVASTATIN [Concomitant]
     Active Substance: ATORVASTATIN
     Indication: HYPERCHOLESTEROLAEMIA
     Dosage: 20 MG, QD
     Route: 048
     Dates: start: 20130420

REACTIONS (3)
  - Basal cell carcinoma [Recovering/Resolving]
  - Squamous cell carcinoma [Recovered/Resolved]
  - Squamous cell carcinoma [Recovering/Resolving]

NARRATIVE: CASE EVENT DATE: 20140429
